FAERS Safety Report 7818844-2 (Version None)
Quarter: 2011Q4

REPORT INFORMATION
  Report Type: 
  Country: None (occurrence: None)
  Receive Date: 20111018
  Receipt Date: 20080919
  Transmission Date: 20120403
  Serious: No
  Sender: FDA-Public Use
  Company Number: 2008BI025080

PATIENT
  Age: 55 Year
  Sex: Female

DRUGS (1)
  1. TYSABRI [Suspect]
     Indication: MULTIPLE SCLEROSIS
     Route: 042
     Dates: start: 20080807

REACTIONS (5)
  - DYSURIA [None]
  - POLLAKIURIA [None]
  - MEMORY IMPAIRMENT [None]
  - URINARY TRACT INFECTION [None]
  - FATIGUE [None]
